FAERS Safety Report 4918004-9 (Version None)
Quarter: 2006Q1

REPORT INFORMATION
  Report Type: 
  Country: None (occurrence: None)
  Receive Date: 20060221
  Receipt Date: 20051010
  Transmission Date: 20060701
  Serious: Yes (Hospitalization)
  Sender: FDA-Public Use
  Company Number: US-MERCK-0510USA06572

PATIENT
  Age: 71 Year
  Sex: Female
  Weight: 91 kg

DRUGS (4)
  1. VIOXX [Suspect]
     Indication: PAIN
     Route: 048
     Dates: start: 20010801, end: 20021001
  2. VIOXX [Suspect]
     Indication: ARTHRITIS
     Route: 048
     Dates: start: 20010801, end: 20021001
  3. DYAZIDE [Concomitant]
     Route: 065
  4. METOPROLOL SUCCINATE [Concomitant]
     Route: 065

REACTIONS (6)
  - ANXIETY [None]
  - CATARACT [None]
  - FEMORAL ARTERIAL STENOSIS [None]
  - ISCHAEMIC STROKE [None]
  - PERIPHERAL ARTERIAL OCCLUSIVE DISEASE [None]
  - WOUND [None]
